FAERS Safety Report 13824003 (Version 1)
Quarter: 2017Q3

REPORT INFORMATION
  Report Type: Report from Study
  Country: US (occurrence: US)
  Receive Date: 20170802
  Receipt Date: 20170802
  Transmission Date: 20171127
  Serious: Yes (Other)
  Sender: FDA-Public Use
  Company Number: US-BIOGEN-2017BI00440141

PATIENT
  Age: 65 Year
  Sex: Male

DRUGS (1)
  1. TECFIDERA [Suspect]
     Active Substance: DIMETHYL FUMARATE
     Indication: MULTIPLE SCLEROSIS
     Route: 065

REACTIONS (5)
  - Abdominal distension [Unknown]
  - Lip swelling [Unknown]
  - Peripheral swelling [Unknown]
  - Dyspnoea [Unknown]
  - Swelling face [Unknown]

NARRATIVE: CASE EVENT DATE: 20170730
